FAERS Safety Report 7943096-2 (Version None)
Quarter: 2011Q4

REPORT INFORMATION
  Report Type: 
  Country: None (occurrence: None)
  Receive Date: 20111128
  Receipt Date: 20111114
  Transmission Date: 20120403
  Serious: Yes (Other)
  Sender: FDA-Public Use
  Company Number: PHHY2009JP39068

PATIENT
  Sex: Male
  Weight: 76 kg

DRUGS (16)
  1. RED BLOOD CELLS, LEUCOCYTE DEPLETED [Concomitant]
     Dosage: 2 U, EVERY TWO WEEKS
     Dates: start: 20080601, end: 20080831
  2. EXJADE [Suspect]
     Dosage: 1500 MG, DAILY
     Route: 048
     Dates: start: 20081105, end: 20081113
  3. EXJADE [Suspect]
     Dosage: 1000 MG, DAILY
     Route: 048
     Dates: start: 20081209, end: 20090106
  4. FOLIC ACID [Concomitant]
     Indication: MYELODYSPLASTIC SYNDROME
     Dosage: 15 MG, UNK
     Route: 048
     Dates: start: 20081007, end: 20090106
  5. URSO 250 [Concomitant]
     Indication: PROPHYLAXIS
     Dosage: 300 MG, UNK
     Route: 048
     Dates: start: 20090109, end: 20090708
  6. RED BLOOD CELLS, LEUCOCYTE DEPLETED [Concomitant]
     Dosage: 2 U, EVERY WEEK
     Dates: start: 20090301, end: 20090309
  7. EXJADE [Suspect]
     Dosage: 1625 MG, DAILY
     Route: 048
     Dates: start: 20081114, end: 20081208
  8. NEORAL [Suspect]
     Indication: MYELODYSPLASTIC SYNDROME
     Dosage: 250 MG, DAILY
     Route: 048
     Dates: start: 20081105, end: 20081203
  9. RED BLOOD CELLS, LEUCOCYTE DEPLETED [Concomitant]
     Dosage: 2 U, EVERY WEEK
     Dates: start: 20080901, end: 20090131
  10. RED BLOOD CELLS, LEUCOCYTE DEPLETED [Concomitant]
     Dosage: 2 U, EVERY THREE OR FOUR DAYS
     Dates: start: 20090201, end: 20090228
  11. EXJADE [Suspect]
     Dosage: 1000 MG, DAILY
     Route: 048
     Dates: start: 20081021, end: 20081104
  12. EXJADE [Suspect]
     Indication: IRON OVERLOAD
     Dosage: 500 MG, DAILY
     Route: 048
     Dates: start: 20081006, end: 20081020
  13. PRIMOBOLAN-DEPOT INJ [Concomitant]
     Indication: MYELODYSPLASTIC SYNDROME
     Dosage: 20 MG, UNK
     Route: 048
     Dates: start: 20081007, end: 20090106
  14. GLAKAY [Concomitant]
     Indication: MYELODYSPLASTIC SYNDROME
     Dosage: 45 MG, UNK
     Route: 048
     Dates: start: 20081007, end: 20090106
  15. ITRACONAZOLE [Concomitant]
     Indication: PROPHYLAXIS
     Dosage: 200 MG, UNK
     Route: 048
     Dates: start: 20090109, end: 20090206
  16. RED BLOOD CELLS, LEUCOCYTE DEPLETED [Concomitant]
     Dosage: 2 U, EVERY FOUR WEEKS
     Dates: start: 20080124, end: 20080531

REACTIONS (3)
  - DRUG INEFFECTIVE [None]
  - SERUM FERRITIN INCREASED [None]
  - RENAL DISORDER [None]
